FAERS Safety Report 12369448 (Version 1)
Quarter: 2016Q2

REPORT INFORMATION
  Report Type: Spontaneous
  Country: US (occurrence: None)
  Receive Date: 20160513
  Receipt Date: 20160513
  Transmission Date: 20160815
  Serious: Yes (Disabling)
  Sender: FDA-Public Use
  Company Number: None

PATIENT
  Age: 55 Year
  Sex: Female
  Weight: 79.38 kg

DRUGS (5)
  1. MELOXICAM. [Concomitant]
     Active Substance: MELOXICAM
  2. INDAPAMIDE. [Concomitant]
     Active Substance: INDAPAMIDE
  3. CIPRO [Suspect]
     Active Substance: CIPROFLOXACIN HYDROCHLORIDE
     Indication: EAR INFECTION
     Route: 048
  4. CIPRO [Suspect]
     Active Substance: CIPROFLOXACIN HYDROCHLORIDE
     Indication: ARTHRITIS
     Route: 048
  5. MULTI-VITAMINS (CALCIUM PANTOTHENATE, FOLIC ACID, VITAMINS NOS) [Concomitant]
     Active Substance: VITAMINS

REACTIONS (4)
  - Joint range of motion decreased [None]
  - Fatigue [None]
  - Gait disturbance [None]
  - Tremor [None]

NARRATIVE: CASE EVENT DATE: 19991010
